FAERS Safety Report 8993529 (Version 1)
Quarter: 2013Q1

REPORT INFORMATION
  Report Type: Report from Study
  Country: US (occurrence: US)
  Receive Date: 20130102
  Receipt Date: 20130102
  Transmission Date: 20140127
  Serious: Yes (Hospitalization, Other)
  Sender: FDA-Public Use
  Company Number: US-BRISTOL-MYERS SQUIBB COMPANY-17239682

PATIENT
  Age: 73 Year
  Sex: Male

DRUGS (6)
  1. SAXAGLIPTIN [Suspect]
     Indication: TYPE 2 DIABETES MELLITUS
     Dates: start: 20110223
  2. METFORMIN HCL [Suspect]
     Indication: TYPE 2 DIABETES MELLITUS
     Dosage: BFRAN-16MAR11-1000?17MAR-1AP11-500?2AP-21JU11-2000?22JU11-CN-500?22JU11-16MY12?16AU-7SP12-250
     Dates: end: 20120907
  3. GLIMEPIRIDE [Suspect]
     Indication: TYPE 2 DIABETES MELLITUS
     Dosage: BEFORE RANDOMIZATION-17MAR2011(4MG)?15JUL2011-10SEP11(4MG)
     Dates: end: 20110910
  4. GLIPIZIDE [Suspect]
     Indication: TYPE 2 DIABETES MELLITUS
     Dosage: 11SEP2011-28NOV2011(5MG)?29NOV2011-CONTINUG (2.5MG)
     Dates: start: 20110911
  5. BLINDED: PLACEBO [Suspect]
     Indication: TYPE 2 DIABETES MELLITUS
     Dates: start: 20110223
  6. ASPIRIN [Concomitant]
     Dosage: ASPIRIN={100MG?14JUN11,22AUG11,28NOV2011,8FEB12,15AUG12
     Dates: start: 20110223

REACTIONS (2)
  - Cardiac failure congestive [Not Recovered/Not Resolved]
  - Non-cardiac chest pain [Recovered/Resolved]
